FAERS Safety Report 16226603 (Version 2)
Quarter: 2019Q2

REPORT INFORMATION
  Report Type: Report from Study
  Country: US (occurrence: US)
  Receive Date: 20190423
  Receipt Date: 20190425
  Transmission Date: 20190711
  Serious: Yes (Hospitalization, Other)
  Sender: FDA-Public Use
  Company Number: US-GLAXOSMITHKLINE-US2019071645

PATIENT
  Age: 30 Year
  Sex: Female

DRUGS (1)
  1. BELIMUMAB SUBCUTANEOUS [Suspect]
     Active Substance: BELIMUMAB
     Indication: PRODUCT USED FOR UNKNOWN INDICATION
     Dosage: UNK
     Route: 058
     Dates: end: 20190411

REACTIONS (4)
  - Pyrexia [Recovered/Resolved]
  - Pneumonia [Recovering/Resolving]
  - Pulmonary microemboli [Recovering/Resolving]
  - Therapy cessation [Unknown]

NARRATIVE: CASE EVENT DATE: 20190415
